FAERS Safety Report 8546498-9 (Version None)
Quarter: 2012Q3

REPORT INFORMATION
  Report Type: 
  Country: None (occurrence: None)
  Receive Date: 20120727
  Receipt Date: 20120713
  Transmission Date: 20120928
  Serious: Yes (Other)
  Sender: FDA-Public Use
  Company Number: DE-WATSON-2012-12383

PATIENT
  Sex: Female

DRUGS (2)
  1. FLUOXETINE HCL [Suspect]
     Dosage: 20 MG MILLIGRAM(S) EVERY DAYS
     Route: 048
  2. FLUOXETINE HCL [Suspect]
     Indication: ANXIETY DISORDER
     Dosage: DAILY DOSE: 30 MG MILLGRAM(S) EVERY DAYS
     Route: 048

REACTIONS (1)
  - FOETAL DEATH [None]
